FAERS Safety Report 5005428-7 (Version None)
Quarter: 2006Q2

REPORT INFORMATION
  Report Type: 
  Country: None (occurrence: None)
  Receive Date: 20060518
  Receipt Date: 20060424
  Transmission Date: 20061013
  Serious: Yes (Hospitalization)
  Sender: FDA-Public Use
  Company Number: US-MERCK-0604USA03672

PATIENT
  Age: 57 Year
  Sex: Male

DRUGS (7)
  1. VIOXX [Suspect]
     Indication: ARTHRITIS
     Route: 048
     Dates: start: 20040203, end: 20041001
  2. LOTREL [Concomitant]
     Route: 065
  3. ATENOL [Concomitant]
     Route: 048
  4. FOLBEE [Concomitant]
     Route: 065
  5. GLIPIZIDE [Concomitant]
     Route: 048
  6. METHOTREXATE [Concomitant]
     Route: 048
  7. PREDNISONE [Concomitant]
     Route: 048

REACTIONS (6)
  - CAROTID ARTERY STENOSIS [None]
  - LACUNAR INFARCTION [None]
  - LYMPHOMA [None]
  - PAROTID GLAND ENLARGEMENT [None]
  - RENAL FAILURE [None]
  - THALAMIC INFARCTION [None]
